FAERS Safety Report 25457737 (Version 2)
Quarter: 2025Q3

REPORT INFORMATION
  Report Type: Report from Study
  Country: US (occurrence: US)
  Receive Date: 20250619
  Receipt Date: 20250730
  Transmission Date: 20251020
  Serious: Yes (Other)
  Sender: MALLINCKRODT
  Company Number: US-MALLINCKRODT-MNK202503667

PATIENT
  Sex: Male

DRUGS (1)
  1. CORTICOTROPIN [Suspect]
     Active Substance: CORTICOTROPIN
     Indication: Polymyositis

REACTIONS (5)
  - Polymyositis [Unknown]
  - Condition aggravated [Unknown]
  - Glycosylated haemoglobin increased [Unknown]
  - Depressed mood [Not Recovered/Not Resolved]
  - Asthenia [Unknown]
